FAERS Safety Report 8875640 (Version 4)
Quarter: 2014Q1

REPORT INFORMATION
  Report Type: Report from Study
  Country: NL (occurrence: NL)
  Receive Date: 20121030
  Receipt Date: 20140224
  Transmission Date: 20141002
  Serious: Yes (Death, Other)
  Sender: FDA-Public Use
  Company Number: NL-ROCHE-1148742

PATIENT
  Sex: 0

DRUGS (1)
  1. CAPECITABINE [Suspect]
     Indication: BREAST CANCER METASTATIC
     Dosage: DAYS 1-14
     Route: 065

REACTIONS (10)
  - Gastrointestinal haemorrhage [Fatal]
  - Palmar-plantar erythrodysaesthesia syndrome [Unknown]
  - Stomatitis [Unknown]
  - Diarrhoea [Unknown]
  - Fatigue [Unknown]
  - Vomiting [Unknown]
  - Nausea [Unknown]
  - Pulmonary embolism [Unknown]
  - Neurological symptom [Unknown]
  - Mucosal inflammation [Unknown]
